FAERS Safety Report 14915909 (Version 1)
Quarter: 2018Q2

REPORT INFORMATION
  Report Type: Report from Study
  Country: None (occurrence: US)
  Receive Date: 20180518
  Receipt Date: 20180518
  Transmission Date: 20180711
  Serious: No
  Sender: FDA-Public Use
  Company Number: US-ABBVIE-18P-163-2356521-00

PATIENT
  Age: 57 Year
  Sex: Male
  Weight: 113.4 kg

DRUGS (7)
  1. LENALIDOMIDE [Concomitant]
     Active Substance: LENALIDOMIDE
     Indication: B-CELL LYMPHOMA REFRACTORY
     Dosage: DAYS 1-12 AND CONTINUE TILL DAY 14
     Route: 048
     Dates: start: 20180427, end: 20180509
  2. VENETOCLAX. [Suspect]
     Active Substance: VENETOCLAX
     Dosage: DAYS 6-8 (CYCLE 2)
     Route: 048
     Dates: start: 20180502, end: 20180504
  3. OBINUTUZUMAB. [Concomitant]
     Active Substance: OBINUTUZUMAB
     Indication: B-CELL LYMPHOMA REFRACTORY
     Dosage: DAYS 1-2 CYCLE 2 (1000MG)
     Route: 042
     Dates: start: 20180427
  4. VENETOCLAX. [Suspect]
     Active Substance: VENETOCLAX
     Indication: B-CELL LYMPHOMA REFRACTORY
     Dosage: DAYS 2-5 (CYCLE 2)
     Route: 048
     Dates: start: 20180427, end: 20180501
  5. OBINUTUZUMAB. [Concomitant]
     Active Substance: OBINUTUZUMAB
     Dosage: DAYS 1-2 CYCLE 2 (1000MG)
     Route: 042
     Dates: start: 20180428
  6. PREDNISONE. [Concomitant]
     Active Substance: PREDNISONE
     Indication: B-CELL LYMPHOMA REFRACTORY
     Dosage: DAYS 1-7
     Route: 048
     Dates: start: 20180427, end: 20180505
  7. IBRUTINIB [Suspect]
     Active Substance: IBRUTINIB
     Indication: B-CELL LYMPHOMA REFRACTORY
     Dosage: DAYS 1-12 AND CONTINUE TILL DAY 14
     Route: 048
     Dates: start: 20180427, end: 20180509

REACTIONS (1)
  - Overdose [Unknown]

NARRATIVE: CASE EVENT DATE: 20180504
